FAERS Safety Report 21349212 (Version 1)
Quarter: 2022Q3

REPORT INFORMATION
  Report Type: Spontaneous
  Country: US (occurrence: US)
  Receive Date: 20220919
  Receipt Date: 20220919
  Transmission Date: 20221027
  Serious: Yes (Other)
  Sender: FDA-Public Use
  Company Number: US-drreddys-SPO/USA/22/0154482

PATIENT
  Age: 14 Year
  Sex: Female

DRUGS (3)
  1. ZENATANE [Suspect]
     Active Substance: ISOTRETINOIN
     Indication: Acne
     Dosage: RMA ISSUE DATE:19 JULY 2022 01:11:35 PM, 20 JUNE 2022 08:44:42 AM, 23 MAY 2022 06:01:18 PM AND 08 AP
  2. ZENATANE [Suspect]
     Active Substance: ISOTRETINOIN
     Dosage: RMA ISSUE DATE:19 JULY 2022 01:11:35 PM, 20 JUNE 2022 08:47:51 AM
  3. ZENATANE [Suspect]
     Active Substance: ISOTRETINOIN
     Dosage: RMA ISSUE DATE:20 NOVEMBER 2021 12:02:30 PM

REACTIONS (1)
  - Emotional disorder [Unknown]
